FAERS Safety Report 5037582-5 (Version None)
Quarter: 2006Q2

REPORT INFORMATION
  Report Type: 
  Country: None (occurrence: None)
  Receive Date: 20060626
  Receipt Date: 20060615
  Transmission Date: 20061013
  Serious: Yes (Life-Threatening, Other)
  Sender: FDA-Public Use
  Company Number: 2006-01483

PATIENT
  Age: 49 Year
  Sex: Female

DRUGS (2)
  1. VELCADE [Suspect]
     Indication: MULTIPLE MYELOMA
     Dosage: 1.50 MG, INTRAVENOUS
     Route: 042
     Dates: start: 20060228, end: 20060519
  2. DEXAMETHASONE [Concomitant]

REACTIONS (3)
  - ABDOMINAL PAIN [None]
  - MELAENA [None]
  - VASCULITIS GASTROINTESTINAL [None]
